FAERS Safety Report 18061806 (Version 3)
Quarter: 2020Q3

REPORT INFORMATION
  Report Type: Spontaneous
  Country: IT (occurrence: IT)
  Receive Date: 20200723
  Receipt Date: 20200818
  Transmission Date: 20201103
  Serious: Yes (Other)
  Sender: FDA-Public Use
  Company Number: IT-MYLANLABS-2020M1062149

PATIENT
  Age: 42 Year
  Sex: Female

DRUGS (5)
  1. FOSFOMYCIN [Suspect]
     Active Substance: FOSFOMYCIN
     Indication: CYSTITIS ESCHERICHIA
     Dosage: 2 GRAM, QD (1 TIME A DAY FOR 2 DAYS)
     Route: 048
  2. FOSFOMYCIN [Suspect]
     Active Substance: FOSFOMYCIN
     Indication: CYSTITIS HAEMORRHAGIC
  3. CIPROFLOXACIN. [Suspect]
     Active Substance: CIPROFLOXACIN
     Indication: CYSTITIS ESCHERICHIA
  4. CIPROFLOXACIN. [Suspect]
     Active Substance: CIPROFLOXACIN
     Indication: CYSTITIS HAEMORRHAGIC
     Dosage: 500 MILLIGRAM, BID (2 TIMES A DAY FOR 6 DAYS)
     Route: 048
  5. CIPROFLOXACIN. [Suspect]
     Active Substance: CIPROFLOXACIN
     Indication: URINARY TRACT INFECTION

REACTIONS (5)
  - Cystitis escherichia [Recovering/Resolving]
  - Drug ineffective [Recovered/Resolved]
  - Vulvovaginal candidiasis [Recovered/Resolved]
  - Diarrhoea [Recovered/Resolved]
  - Escherichia infection [Recovered/Resolved]
